FAERS Safety Report 14016699 (Version 2)
Quarter: 2017Q4

REPORT INFORMATION
  Report Type: Spontaneous
  Country: US (occurrence: US)
  Receive Date: 20170927
  Receipt Date: 20171107
  Transmission Date: 20180321
  Serious: No
  Sender: FDA-Public Use
  Company Number: US-PFIZER INC-2017415787

PATIENT
  Sex: Female

DRUGS (7)
  1. CRESTOR [Suspect]
     Active Substance: ROSUVASTATIN CALCIUM
     Indication: BLOOD PRESSURE ABNORMAL
     Dosage: UNK
  2. BUTRANS [Suspect]
     Active Substance: BUPRENORPHINE
     Dosage: 20 UG, PER HOUR
  3. BUTRANS [Suspect]
     Active Substance: BUPRENORPHINE
     Dosage: 20 UG, PER HOUR
  4. LYRICA [Suspect]
     Active Substance: PREGABALIN
     Indication: BLOOD PRESSURE ABNORMAL
     Dosage: 75 MG, 2X/DAY
  5. BUTRANS [Suspect]
     Active Substance: BUPRENORPHINE
     Dosage: 15 UG, PER HOUR
  6. CELEBREX [Suspect]
     Active Substance: CELECOXIB
     Indication: BLOOD PRESSURE ABNORMAL
     Dosage: UNK
  7. DULOXETINE. [Suspect]
     Active Substance: DULOXETINE
     Indication: BLOOD PRESSURE ABNORMAL
     Dosage: UNK

REACTIONS (3)
  - Swelling [Recovered/Resolved]
  - Product use in unapproved indication [Recovered/Resolved]
  - Fluid retention [Recovered/Resolved]
